FAERS Safety Report 12920440 (Version 1)
Quarter: 2016Q4

REPORT INFORMATION
  Report Type: Spontaneous
  Country: CN (occurrence: CN)
  Receive Date: 20161108
  Receipt Date: 20161108
  Transmission Date: 20170207
  Serious: Yes (Other)
  Sender: FDA-Public Use
  Company Number: PHHY2016CN151245

PATIENT
  Age: 66 Year
  Sex: Male

DRUGS (1)
  1. ZOLEDRONIC ACID [Suspect]
     Active Substance: ZOLEDRONIC ACID
     Indication: BONE CANCER METASTATIC
     Dosage: 4 MG, QMO
     Route: 042

REACTIONS (3)
  - Osteonecrosis of jaw [Recovering/Resolving]
  - Oral infection [Unknown]
  - Pain in jaw [Recovered/Resolved]
